FAERS Safety Report 6025619-6 (Version None)
Quarter: 2008Q4

REPORT INFORMATION
  Report Type: 
  Country: None (occurrence: None)
  Receive Date: 20081231
  Receipt Date: 20081219
  Transmission Date: 20090506
  Serious: Yes (Death, Other)
  Sender: FDA-Public Use
  Company Number: ES-B.I. PHARMACEUTICALS,INC./RIDGEFIELD-2008-DE-05048GD

PATIENT

DRUGS (2)
  1. APTIVUS [Suspect]
     Indication: HIV INFECTION
     Dosage: TIPRANAVIR/RITONAVIR 1000/400 MG
  2. ANTI-HIV AGENTS [Concomitant]
     Indication: HIV INFECTION

REACTIONS (2)
  - ACQUIRED IMMUNODEFICIENCY SYNDROME [None]
  - HEPATOTOXICITY [None]
